FAERS Safety Report 7588156-3 (Version None)
Quarter: 2011Q3

REPORT INFORMATION
  Report Type: 
  Country: None (occurrence: None)
  Receive Date: 20110705
  Receipt Date: 20110609
  Transmission Date: 20111222
  Serious: Yes (Other)
  Sender: FDA-Public Use
  Company Number: US-BAYER-201040111NA

PATIENT
  Sex: Female
  Weight: 65.76 kg

DRUGS (7)
  1. YASMIN [Suspect]
     Indication: MENSTRUATION IRREGULAR
  2. PREVACID [Concomitant]
  3. LORAZEPAM [Concomitant]
  4. LEXAPRO [Concomitant]
  5. INHALER (NOS) [Concomitant]
     Dosage: UNK
     Dates: start: 20060101
  6. AMBIEN [Concomitant]
     Indication: SLEEP DISORDER THERAPY
     Dosage: UNK
     Dates: start: 20000101, end: 20100101
  7. YASMIN [Suspect]
     Indication: CONTRACEPTION
     Route: 048
     Dates: start: 20010101, end: 20080101

REACTIONS (7)
  - GALLBLADDER DISORDER [None]
  - NAUSEA [None]
  - PROCEDURAL PAIN [None]
  - DYSPEPSIA [None]
  - BILIARY DYSKINESIA [None]
  - ABDOMINAL PAIN UPPER [None]
  - MEDICAL DIET [None]
